FAERS Safety Report 6931538-0 (Version None)
Quarter: 2010Q3

REPORT INFORMATION
  Report Type: 
  Country: None (occurrence: None)
  Receive Date: 20100819
  Receipt Date: 20100809
  Transmission Date: 20110219
  Serious: No
  Sender: FDA-Public Use
  Company Number: US-MYLANLABS-2010S1011601

PATIENT
  Age: 35 Year
  Sex: Female
  Weight: 104.33 kg

DRUGS (22)
  1. FENTANYL CITRATE [Suspect]
     Indication: ARTHRALGIA
     Dosage: CHANGED Q72H
     Route: 062
     Dates: start: 20090101, end: 20100101
  2. FENTANYL CITRATE [Suspect]
     Dosage: CHANGED Q72H
     Route: 062
     Dates: start: 20090101, end: 20100101
  3. FENTANYL CITRATE [Suspect]
     Indication: FIBROMYALGIA
     Dosage: CHANGED Q72H
     Route: 062
     Dates: start: 20090101, end: 20100101
  4. FENTANYL CITRATE [Suspect]
     Indication: BACK PAIN
     Dosage: CHANGED Q72H
     Route: 062
     Dates: start: 20090101, end: 20100101
  5. FENTANYL CITRATE [Suspect]
     Dosage: CHANGED Q72H
     Route: 062
     Dates: start: 20090101, end: 20100101
  6. FENTANYL CITRATE [Suspect]
     Dosage: CHANGED Q72H
     Route: 062
     Dates: start: 20090101, end: 20100101
  7. FENTANYL CITRATE [Suspect]
     Dosage: CHANGED Q72H
     Route: 062
     Dates: start: 20090101, end: 20100101
  8. FENTANYL CITRATE [Suspect]
     Dosage: CHANGED Q72H
     Route: 062
     Dates: start: 20090101, end: 20100101
  9. FENTANYL CITRATE [Suspect]
     Dosage: CHANGED Q48H
     Route: 062
     Dates: start: 20100101
  10. FENTANYL CITRATE [Suspect]
     Dosage: CHANGED Q48H
     Route: 062
     Dates: start: 20100101
  11. FENTANYL CITRATE [Suspect]
     Dosage: CHANGED Q48H
     Route: 062
     Dates: start: 20100101
  12. FENTANYL CITRATE [Suspect]
     Dosage: CHANGED Q48H
     Route: 062
     Dates: start: 20100101
  13. CYMBALTA [Concomitant]
     Indication: BIPOLAR DISORDER
     Route: 048
  14. XANAX [Concomitant]
     Indication: ANXIETY
     Route: 048
  15. LAMICTAL [Concomitant]
     Indication: BIPOLAR DISORDER
     Route: 048
  16. NORCO [Concomitant]
     Indication: ARTHRALGIA
     Route: 048
  17. XYREM [Concomitant]
     Indication: NARCOLEPSY
     Route: 048
  18. ADDERALL 10 [Concomitant]
     Indication: NARCOLEPSY
     Route: 048
  19. HYDROCODONE BITARTRATE AND ACETAMINOPHEN [Concomitant]
     Dosage: 7.5MG/325MG
     Route: 048
  20. LYRICA [Concomitant]
     Route: 048
  21. TOPIRAMATE [Concomitant]
     Route: 048
  22. HYDROCHLOROTHIAZIDE [Concomitant]

REACTIONS (4)
  - ARTHRALGIA [None]
  - DRUG INEFFECTIVE [None]
  - DRUG SCREEN NEGATIVE [None]
  - DRUG WITHDRAWAL SYNDROME [None]
